FAERS Safety Report 8041260-8 (Version None)
Quarter: 2012Q1

REPORT INFORMATION
  Report Type: 
  Country: None (occurrence: None)
  Receive Date: 20120112
  Receipt Date: 20120110
  Transmission Date: 20120608
  Serious: No
  Sender: FDA-Public Use
  Company Number: US-PFIZER INC-2012007963

PATIENT
  Sex: Female
  Weight: 86.621 kg

DRUGS (8)
  1. ACCOLATE [Concomitant]
     Indication: BRONCHIAL DISORDER
     Dosage: UNK
  2. PREVACID [Concomitant]
     Indication: GASTROOESOPHAGEAL REFLUX DISEASE
     Dosage: UNK
  3. CELEBREX [Suspect]
     Indication: JOINT DESTRUCTION
     Dosage: UNK
     Dates: start: 20000101
  4. SYNTHROID [Concomitant]
     Indication: THYROID DISORDER
     Dosage: UNK
  5. SYMBICORT [Concomitant]
     Indication: DYSPNOEA
     Dosage: UNK
  6. PREMARIN [Concomitant]
     Indication: HORMONE THERAPY
     Dosage: UNK
  7. CELEBREX [Suspect]
     Indication: ARTHRITIS
     Dosage: 200 MG, AS NEEDED
  8. ACCOLATE [Concomitant]
     Indication: DYSPNOEA

REACTIONS (5)
  - MUSCULOSKELETAL STIFFNESS [None]
  - NECK MASS [None]
  - MOVEMENT DISORDER [None]
  - DRUG INEFFECTIVE [None]
  - BRONCHITIS [None]
